FAERS Safety Report 8352041-X (Version None)
Quarter: 2012Q2

REPORT INFORMATION
  Report Type: 
  Country: None (occurrence: None)
  Receive Date: 20120509
  Receipt Date: 20120509
  Transmission Date: 20120825
  Serious: Yes (Other)
  Sender: FDA-Public Use
  Company Number: None

PATIENT
  Age: 41 Year
  Sex: Female
  Weight: 49.8957 kg

DRUGS (1)
  1. SUBOXONE [Suspect]
     Indication: DEPENDENCE
     Dosage: 1/2 FILM QID SL HOURS
     Route: 060
     Dates: start: 20120424, end: 20120425

REACTIONS (6)
  - VOMITING [None]
  - NAUSEA [None]
  - RETCHING [None]
  - DYSGEUSIA [None]
  - PAROSMIA [None]
  - FEELING ABNORMAL [None]
